FAERS Safety Report 8032861-1 (Version None)
Quarter: 2012Q1

REPORT INFORMATION
  Report Type: 
  Country: None (occurrence: None)
  Receive Date: 20120110
  Receipt Date: 20120104
  Transmission Date: 20120608
  Serious: Yes (Other)
  Sender: FDA-Public Use
  Company Number: US-BAYER-2012-001530

PATIENT
  Age: 73 Year
  Sex: Male

DRUGS (5)
  1. DIABETON [GLIBENCLAMIDE] [Concomitant]
  2. ALEVE (CAPLET) [Suspect]
     Indication: ARTHRITIS
     Dosage: 1 DF, BID
     Route: 048
     Dates: start: 20090101
  3. SIOFOR [Concomitant]
  4. ASPIRIN [Concomitant]
  5. BETA BLOCKING AGENTS [Concomitant]

REACTIONS (1)
  - BLOOD URINE PRESENT [None]
